FAERS Safety Report 15303046 (Version 3)
Quarter: 2018Q3

REPORT INFORMATION
  Report Type: Spontaneous
  Country: US (occurrence: US)
  Receive Date: 20180821
  Receipt Date: 20180912
  Transmission Date: 20181010
  Serious: Yes (Other)
  Sender: FDA-Public Use
  Company Number: US-009507513-1808USA006853

PATIENT
  Age: 22 Year
  Sex: Female
  Weight: 92.07 kg

DRUGS (1)
  1. NEXPLANON [Suspect]
     Active Substance: ETONOGESTREL
     Dosage: 1 DF, UNK
     Route: 059
     Dates: start: 20150805

REACTIONS (7)
  - Menorrhagia [Recovered/Resolved]
  - Incorrect drug administration duration [Unknown]
  - Drug prescribing error [Unknown]
  - Pregnancy with implant contraceptive [Recovered/Resolved]
  - Amenorrhoea [Unknown]
  - Abortion spontaneous [Unknown]
  - Unintended pregnancy [Recovered/Resolved]

NARRATIVE: CASE EVENT DATE: 2015
